FAERS Safety Report 25324122 (Version 1)
Quarter: 2025Q2

REPORT INFORMATION
  Report Type: Spontaneous
  Country: US (occurrence: US)
  Receive Date: 20250516
  Receipt Date: 20250516
  Transmission Date: 20250716
  Serious: No
  Sender: TEVA
  Company Number: US-TEVA-VS-3329535

PATIENT
  Sex: Female

DRUGS (1)
  1. QVAR [Suspect]
     Active Substance: BECLOMETHASONE DIPROPIONATE
     Indication: Asthma
     Route: 065

REACTIONS (2)
  - Oral candidiasis [Unknown]
  - Drug delivery system issue [Unknown]
